FAERS Safety Report 12392812 (Version 1)
Quarter: 2016Q2

REPORT INFORMATION
  Report Type: Spontaneous
  Country: US (occurrence: US)
  Receive Date: 20160523
  Receipt Date: 20160523
  Transmission Date: 20160815
  Serious: No
  Sender: FDA-Public Use
  Company Number: US-TEVA-579050USA

PATIENT
  Sex: Female

DRUGS (1)
  1. JUNEL [Suspect]
     Active Substance: ETHINYL ESTRADIOL\NORETHINDRONE ACETATE
     Indication: CONTRACEPTION
     Dosage: 1.5MG/30MCG
     Route: 065

REACTIONS (3)
  - Anger [Unknown]
  - Social avoidant behaviour [Unknown]
  - Depression [Unknown]

NARRATIVE: CASE EVENT DATE: 201504
